FAERS Safety Report 7995310-5 (Version None)
Quarter: 2011Q4

REPORT INFORMATION
  Report Type: 
  Country: None (occurrence: None)
  Receive Date: 20111217
  Receipt Date: 20111217
  Transmission Date: 20120403
  Serious: No
  Sender: FDA-Public Use
  Company Number: None

PATIENT

DRUGS (1)
  1. OXYCONTIN [Suspect]
     Dosage: TABLET ORAL 10 MG 20 MG
     Route: 048

REACTIONS (1)
  - MEDICATION ERROR [None]
